FAERS Safety Report 8877548 (Version 2)
Quarter: 2013Q1

REPORT INFORMATION
  Report Type: Report from Study
  Country: JP (occurrence: JP)
  Receive Date: 20121024
  Receipt Date: 20130212
  Transmission Date: 20140127
  Serious: Yes (Other)
  Sender: FDA-Public Use
  Company Number: JP-009507513-2012SP029681

PATIENT
  Age: 64 Year
  Sex: Male
  Weight: 66 kg

DRUGS (14)
  1. PEGINTRON [Suspect]
     Indication: CHRONIC HEPATITIS C
     Dosage: 1.5 MICROGRAM PER KILOGRAM, QW
     Route: 058
     Dates: start: 20120328, end: 20120905
  2. REBETOL [Suspect]
     Indication: CHRONIC HEPATITIS C
     Dosage: 600 MG, QD
     Route: 048
     Dates: start: 20120328, end: 20120421
  3. REBETOL [Suspect]
     Dosage: 400 MG, QD
     Route: 048
     Dates: start: 20120422, end: 20120509
  4. REBETOL [Suspect]
     Dosage: 600 MG, QD
     Route: 048
     Dates: start: 20120510, end: 20120717
  5. REBETOL [Suspect]
     Dosage: 400 MG, QD
     Route: 048
     Dates: start: 20120718, end: 20120911
  6. TELAVIC [Suspect]
     Indication: HEPATITIS C
     Dosage: 2250 MG, QD
     Route: 048
     Dates: start: 20120328, end: 20120405
  7. TELAVIC [Suspect]
     Dosage: 1500 MG, QD
     Route: 048
     Dates: start: 20120406, end: 20120506
  8. TELAVIC [Suspect]
     Dosage: 750 MG, QD
     Route: 048
     Dates: start: 20120523, end: 20120529
  9. TELAVIC [Suspect]
     Dosage: 250 MG, QD
     Route: 048
     Dates: start: 20120530, end: 20120605
  10. TELAVIC [Suspect]
     Dosage: 500 MG, QD
     Route: 048
     Dates: start: 20120606, end: 20120619
  11. DANDELION (+) MADDER (+) SENNA (+) YARROW [Concomitant]
     Indication: CONSTIPATION
     Dosage: DOSAGE TEXT 0.5G/DAY, AS NEEDED, FORMULATION :POR
     Route: 048
     Dates: start: 20120405
  12. REBAMIPIDE [Concomitant]
     Indication: PROPHYLAXIS
     Dosage: 300 MG, QD
     Route: 048
     Dates: start: 20120507, end: 20120717
  13. LOXOPROFEN SODIUM [Concomitant]
     Indication: PROPHYLAXIS
     Dosage: FORMULATION :POR, 60 MG/DAY AS NEEDED
     Route: 048
     Dates: start: 20120328, end: 20120509
  14. ALOSENN (SENNA) [Concomitant]
     Indication: CONSTIPATION
     Dosage: 0.5 G, QD, AS NEEDED
     Route: 048
     Dates: start: 20120405

REACTIONS (2)
  - Toxic skin eruption [Recovered/Resolved]
  - Haemoglobin decreased [Recovered/Resolved]
